FAERS Safety Report 20743603 (Version 1)
Quarter: 2022Q2

REPORT INFORMATION
  Report Type: Spontaneous
  Country: SE (occurrence: SE)
  Receive Date: 20220425
  Receipt Date: 20220425
  Transmission Date: 20220720
  Serious: Yes (Other)
  Sender: FDA-Public Use
  Company Number: None

PATIENT
  Age: 80 Year
  Sex: Male

DRUGS (2)
  1. AZARGA [Interacting]
     Active Substance: BRINZOLAMIDE\TIMOLOL MALEATE
     Indication: Open angle glaucoma
     Dosage: 2 DOSAGE FORM, QD
     Route: 065
  2. LATANOPROST [Interacting]
     Active Substance: LATANOPROST
     Indication: Open angle glaucoma
     Dosage: 1 UNK, QD
     Route: 065

REACTIONS (22)
  - Rash [Unknown]
  - Faeces hard [Not Recovered/Not Resolved]
  - Eyelid irritation [Not Recovered/Not Resolved]
  - Defaecation urgency [Not Recovered/Not Resolved]
  - Erythema of eyelid [Not Recovered/Not Resolved]
  - Middle insomnia [Unknown]
  - Lacrimation increased [Not Recovered/Not Resolved]
  - Head discomfort [Not Recovered/Not Resolved]
  - Hallucination [Not Recovered/Not Resolved]
  - Administration site pruritus [Unknown]
  - Change of bowel habit [Not Recovered/Not Resolved]
  - Sneezing [Not Recovered/Not Resolved]
  - Abdominal discomfort [Not Recovered/Not Resolved]
  - Insomnia [Unknown]
  - Pollakiuria [Not Recovered/Not Resolved]
  - Nightmare [Not Recovered/Not Resolved]
  - Drug interaction [Unknown]
  - Rhinitis [Unknown]
  - Diarrhoea [Not Recovered/Not Resolved]
  - Eye pain [Unknown]
  - Vision blurred [Not Recovered/Not Resolved]
  - Male sexual dysfunction [Not Recovered/Not Resolved]

NARRATIVE: CASE EVENT DATE: 20210101
